FAERS Safety Report 5372554-2 (Version None)
Quarter: 2007Q2

REPORT INFORMATION
  Report Type: 
  Country: None (occurrence: None)
  Receive Date: 20070625
  Receipt Date: 20070618
  Transmission Date: 20071010
  Serious: Yes (Other)
  Sender: FDA-Public Use
  Company Number: 2007SP006976

PATIENT
  Sex: Male

DRUGS (3)
  1. CLARITIN-D [Suspect]
     Indication: SINUS CONGESTION
     Dosage: 1 DF; ONCE; PO
     Route: 048
     Dates: start: 20070410, end: 20070410
  2. AMOXICILLIN (CON.) [Concomitant]
  3. NASOCORT (CON.) [Concomitant]

REACTIONS (2)
  - HALLUCINATION, VISUAL [None]
  - PHARMACEUTICAL PRODUCT COMPLAINT [None]
